FAERS Safety Report 16807806 (Version 2)
Quarter: 2019Q3

REPORT INFORMATION
  Report Type: Spontaneous
  Country: JP (occurrence: JP)
  Receive Date: 20190915
  Receipt Date: 20190915
  Transmission Date: 20191005
  Serious: Yes (Other)
  Sender: FDA-Public Use
  Company Number: PHJP2019JP011786

PATIENT
  Age: 37 Year
  Sex: Female

DRUGS (4)
  1. DICLOFENAC [Suspect]
     Active Substance: DICLOFENAC
     Dosage: 150 MG (4 MONTHS AFTER BIRTH)
     Route: 065
  2. LOXOPROFEN [Suspect]
     Active Substance: LOXOPROFEN
     Indication: PAIN IN EXTREMITY
     Dosage: 180 MG, UNK
     Route: 065
  3. DICLOFENAC [Suspect]
     Active Substance: DICLOFENAC
     Indication: PAIN IN EXTREMITY
     Dosage: 50 MG, UNK
     Route: 065
  4. ACETAMINOPHEN. [Suspect]
     Active Substance: ACETAMINOPHEN
     Indication: PAIN IN EXTREMITY
     Dosage: 1500 MG, UNK
     Route: 065

REACTIONS (4)
  - Maternal exposure during pregnancy [Unknown]
  - Pain in extremity [Recovering/Resolving]
  - Hyperemesis gravidarum [Unknown]
  - Nausea [Not Recovered/Not Resolved]
